FAERS Safety Report 18454596 (Version 1)
Quarter: 2020Q4

REPORT INFORMATION
  Report Type: Spontaneous
  Country: CO (occurrence: CO)
  Receive Date: 20201103
  Receipt Date: 20201103
  Transmission Date: 20210114
  Serious: Yes (Life-Threatening)
  Sender: FDA-Public Use
  Company Number: CO-SA-2020SA305915

PATIENT

DRUGS (12)
  1. ELOXATIN [Suspect]
     Active Substance: OXALIPLATIN
     Indication: GASTRIC CANCER STAGE IV
     Dosage: 150 MG, Q15D
     Route: 042
     Dates: start: 20200506, end: 20200506
  2. FLUOROURACIL. [Concomitant]
     Active Substance: FLUOROURACIL
     Indication: GASTRIC CANCER STAGE IV
     Dosage: 720 MG, Q15D
     Route: 042
     Dates: start: 20200506, end: 20201014
  3. DEXAMETHASONE. [Concomitant]
     Active Substance: DEXAMETHASONE
     Indication: PREMEDICATION
     Dosage: 8 MG, Q15D
     Route: 042
     Dates: start: 20200506, end: 20201014
  4. FLUOROURACIL. [Concomitant]
     Active Substance: FLUOROURACIL
     Dosage: 4320 MG, Q15D
     Route: 042
     Dates: start: 20200506, end: 20201014
  5. CALCIUM FOLINATE [Suspect]
     Active Substance: LEUCOVORIN CALCIUM
     Dosage: 720 MG, Q15D
     Route: 042
     Dates: start: 20201014, end: 20201014
  6. NORMAL SALINE [Concomitant]
     Active Substance: SODIUM CHLORIDE
     Dosage: 100 CC, UNK
     Route: 042
     Dates: start: 20200506, end: 20201014
  7. NORMAL SALINE [Concomitant]
     Active Substance: SODIUM CHLORIDE
     Indication: MEDICATION DILUTION
     Dosage: 150 CC, UNK
     Route: 042
     Dates: start: 20200506, end: 20201014
  8. ELOXATIN [Suspect]
     Active Substance: OXALIPLATIN
     Dosage: 150 MG, Q15D
     Route: 042
     Dates: start: 20201014, end: 20201014
  9. CALCIUM FOLINATE [Suspect]
     Active Substance: LEUCOVORIN CALCIUM
     Indication: GASTRIC CANCER STAGE IV
     Dosage: 720 MG, Q15D
     Route: 042
     Dates: start: 20200506, end: 20201006
  10. FOSAPREPITANT [Concomitant]
     Active Substance: FOSAPREPITANT
     Indication: PREMEDICATION
     Dosage: 150 MG, Q15D
     Route: 042
     Dates: start: 20200506, end: 20201014
  11. NORMAL SALINE [Concomitant]
     Active Substance: SODIUM CHLORIDE
     Dosage: 500 CC, UNK
     Route: 042
     Dates: start: 20200506, end: 20201014
  12. ONDANSETRON [Concomitant]
     Active Substance: ONDANSETRON
     Indication: PREMEDICATION
     Dosage: 16 MG, Q15D
     Route: 042
     Dates: start: 20200506, end: 20201014

REACTIONS (2)
  - Erythema [Recovered/Resolved]
  - Pruritus [Recovered/Resolved]

NARRATIVE: CASE EVENT DATE: 20201014
